FAERS Safety Report 4877129-7 (Version None)
Quarter: 2005Q4

REPORT INFORMATION
  Report Type: 
  Country: None (occurrence: None)
  Receive Date: 20051206
  Receipt Date: 20050823
  Transmission Date: 20060501
  Serious: No
  Sender: FDA-Public Use
  Company Number: USA0508106313

PATIENT
  Age: 45 Year
  Sex: Female

DRUGS (1)
  1. CYMBALTA [Suspect]
     Indication: BACK PAIN
     Dosage: 30 MG DAY
     Dates: start: 20050822

REACTIONS (6)
  - ANOREXIA [None]
  - DRY MOUTH [None]
  - FATIGUE [None]
  - FOOD AVERSION [None]
  - HEADACHE [None]
  - NAUSEA [None]
